FAERS Safety Report 4521757-5 (Version None)
Quarter: 2004Q4

REPORT INFORMATION
  Report Type: 
  Country: None (occurrence: None)
  Receive Date: 20041209
  Receipt Date: 20041116
  Transmission Date: 20050328
  Serious: Yes (Disabling)
  Sender: FDA-Public Use
  Company Number: IN-SOLVAY-00304004110

PATIENT
  Age: 34 Year
  Sex: Male
  Weight: 74 kg

DRUGS (2)
  1. LUVOX [Suspect]
     Indication: OBSESSIVE-COMPULSIVE DISORDER
     Dosage: DAILY DOSE: 200 MILLIGRAM(S)
     Route: 048
     Dates: start: 20040312, end: 20040101
  2. LUVOX [Suspect]
     Dosage: DAILY DOSE:  UNKNOWN
     Route: 048
     Dates: start: 20040101, end: 20040916

REACTIONS (6)
  - AKATHISIA [None]
  - DEPRESSION [None]
  - DYSKINESIA [None]
  - RESTLESSNESS [None]
  - SALIVARY HYPERSECRETION [None]
  - TREMOR [None]
